FAERS Safety Report 5722182-1 (Version None)
Quarter: 2008Q2

REPORT INFORMATION
  Report Type: 
  Country: None (occurrence: None)
  Receive Date: 20080429
  Receipt Date: 20080423
  Transmission Date: 20081010
  Serious: Yes (Life-Threatening)
  Sender: FDA-Public Use
  Company Number: US-BAXTER-2008BH004205

PATIENT
  Sex: Female

DRUGS (1)
  1. ARTISS [Suspect]
     Indication: DRUG USE FOR UNKNOWN INDICATION
     Dosage: DOSE UNIT:UNKNOWN
     Route: 065
     Dates: start: 20070401, end: 20070401

REACTIONS (2)
  - ANAPHYLACTIC REACTION [None]
  - CARDIAC ARREST [None]
